FAERS Safety Report 25638246 (Version 1)
Quarter: 2025Q3

REPORT INFORMATION
  Report Type: Spontaneous
  Country: EU (occurrence: EU)
  Receive Date: 20250804
  Receipt Date: 20250804
  Transmission Date: 20251020
  Serious: Yes (Hospitalization)
  Sender: CHEPLAPHARM
  Company Number: EU-ROCHE-2398400

PATIENT
  Age: 62 Year
  Sex: Female
  Weight: 68.8 kg

DRUGS (8)
  1. CAPECITABINE [Suspect]
     Active Substance: CAPECITABINE
     Indication: Triple negative breast cancer
     Dosage: ON 27/AUG/2019, PATIENT RECEIVED MOST RECENT DOSE OF CAPECITABINE
     Route: 048
     Dates: start: 20190702
  2. CAPECITABINE [Suspect]
     Active Substance: CAPECITABINE
     Indication: Triple negative breast cancer
     Dosage: ON 27/AUG/2019, PATIENT RECEIVED MOST RECENT DOSE OF CAPECITABINE
     Route: 048
     Dates: start: 20190702
  3. ATEZOLIZUMAB [Suspect]
     Active Substance: ATEZOLIZUMAB
     Indication: Triple negative breast cancer
     Dosage: ON 20/AUG/2019, PATIENT RECEIVED MOST RECENT DOSE OF ATEZOLIZUMAB
     Route: 042
     Dates: start: 20190702
  4. ALMOTRIPTAN MALATE [Concomitant]
     Active Substance: ALMOTRIPTAN MALATE
     Dates: start: 2010
  5. TOPIRAMATE [Concomitant]
     Active Substance: TOPIRAMATE
     Indication: Prophylaxis
     Dates: start: 2010
  6. PRIMPERAN [Concomitant]
     Active Substance: METOCLOPRAMIDE HYDROCHLORIDE
     Indication: Prophylaxis
     Dates: start: 20190702, end: 20190727
  7. IMODIUM [Concomitant]
     Active Substance: LOPERAMIDE HYDROCHLORIDE
     Indication: Prophylaxis
     Dates: start: 20190702, end: 20190727
  8. PANTOPRAZOLE [Concomitant]
     Active Substance: PANTOPRAZOLE
     Indication: Prophylaxis
     Dates: start: 20190907

REACTIONS (1)
  - Orthostatic hypotension [Recovered/Resolved]

NARRATIVE: CASE EVENT DATE: 20190827
